FAERS Safety Report 8103575-4 (Version None)
Quarter: 2012Q1

REPORT INFORMATION
  Report Type: 
  Country: None (occurrence: None)
  Receive Date: 20120201
  Receipt Date: 20120131
  Transmission Date: 20120608
  Serious: Yes (Death)
  Sender: FDA-Public Use
  Company Number: PHEH2011US03472

PATIENT
  Sex: Female

DRUGS (2)
  1. ZOMETA [Suspect]
     Dosage: 4 MG, QMO
     Dates: start: 20110715
  2. ZOMETA [Suspect]
     Dosage: 4 MG, QMO
     Dates: start: 20110824

REACTIONS (1)
  - DEATH [None]
